FAERS Safety Report 24938199 (Version 2)
Quarter: 2025Q3

REPORT INFORMATION
  Report Type: Spontaneous
  Country: CN (occurrence: CN)
  Receive Date: 20250206
  Receipt Date: 20250809
  Transmission Date: 20251020
  Serious: Yes (Other)
  Sender: ALEXION PHARMACEUTICALS
  Company Number: CN-ASTRAZENECA-202502CHN000881CN

PATIENT
  Age: 38 Year
  Sex: Female
  Weight: 51.5 kg

DRUGS (1)
  1. TAGRISSO [Suspect]
     Active Substance: OSIMERTINIB
     Indication: Lung adenocarcinoma
     Dosage: 80 MILLIGRAM, QD
     Dates: start: 20241016, end: 20241225

REACTIONS (5)
  - Drug eruption [Recovering/Resolving]
  - Rash erythematous [Unknown]
  - Erythema of eyelid [Unknown]
  - Swelling of eyelid [Unknown]
  - Pruritus [Unknown]

NARRATIVE: CASE EVENT DATE: 20241223
